FAERS Safety Report 9197292 (Version 1)
Quarter: 2013Q1

REPORT INFORMATION
  Report Type: Spontaneous
  Country: US (occurrence: None)
  Receive Date: 20120709
  Receipt Date: 20120709
  Transmission Date: 20140127
  Serious: No
  Sender: FDA-Public Use
  Company Number: 2012HGS-003635

PATIENT
  Age: 43 Year
  Sex: Female
  Weight: 103.87 kg

DRUGS (12)
  1. BENLYSTA [Suspect]
     Indication: SYSTEMIC LUPUS ERYTHEMATOSUS
     Dosage: 1 IN 28 D
     Route: 041
     Dates: start: 20120503, end: 20120516
  2. EPIPEN (EPINEPHRINE) EPINEPHRINE) [Concomitant]
  3. KEPRA (LEVETIIRACETAM,) (LEVETIRACETAM) [Concomitant]
  4. COLESTID  (COLESTIPOL HYDROCHLORIDE) (COLESTIOL HYDROCHLRIDEZZZZZZZZZZZZZZZZZZZZZZZZZZZZZZZZZZZZZZZ) [Concomitant]
  5. PREMARIN (ESTROGENS CONJUGATED) (ESTROGENS CONJUGATED) [Concomitant]
  6. PREMARIN (ERGOCALCIFEROL) (ERGOCALCIFEROL) [Concomitant]
  7. MEDROL (METHYLPREDNISOLONE ACETATE) (METHYLPREDNISOLONE ACETATE) [Concomitant]
  8. LORTAB 10 (VICODIN) (PARACETAMOL, HYDROCODONE BITARTRATE) [Concomitant]
  9. XANAX (ALPRAZOLAM) (ALPRAZOLAM) [Concomitant]
  10. SEROQUEL (QUETIAPINE FUMARATE) (QUETIAPINE FUMARATE) [Concomitant]
  11. GABAPENTIN (GABAPENTIN) (GABAPENTIN) [Concomitant]
  12. TOPIRAMATE (TOPIRAMATE) (TOPIRAMATE) [Concomitant]

REACTIONS (3)
  - Laboratory test abnormal [None]
  - Rash [None]
  - Pruritus [None]
